FAERS Safety Report 6515724-X (Version None)
Quarter: 2009Q4

REPORT INFORMATION
  Report Type: 
  Country: None (occurrence: None)
  Receive Date: 20091223
  Receipt Date: 20091209
  Transmission Date: 20100525
  Serious: Yes (Other)
  Sender: FDA-Public Use
  Company Number: GB-MYLANLABS-2009S1021172

PATIENT
  Age: 20 Year
  Sex: Male

DRUGS (4)
  1. MIRTAZAPINE [Suspect]
     Indication: DRUG USE FOR UNKNOWN INDICATION
  2. FUROSEMIDE [Suspect]
     Indication: DRUG USE FOR UNKNOWN INDICATION
  3. ALCOHOL [Suspect]
     Indication: DRUG USE FOR UNKNOWN INDICATION
  4. PARACETAMOL [Suspect]
     Indication: DRUG USE FOR UNKNOWN INDICATION

REACTIONS (3)
  - DYSTONIA [None]
  - MULTIPLE DRUG OVERDOSE [None]
  - NAUSEA [None]
